FAERS Safety Report 5348530-2 (Version None)
Quarter: 2007Q2

REPORT INFORMATION
  Report Type: 
  Country: None (occurrence: None)
  Receive Date: 20070605
  Receipt Date: 20070523
  Transmission Date: 20071010
  Serious: Yes (Other)
  Sender: FDA-Public Use
  Company Number: 2007315993

PATIENT
  Sex: Female

DRUGS (1)
  1. ROGAINE [Suspect]
     Indication: ALOPECIA
     Dosage: FOLLOWING INSTRUCTIONS
     Dates: start: 20050821, end: 20070101

REACTIONS (2)
  - HEPATIC INFECTION [None]
  - HEPATOCELLULAR DAMAGE [None]
